FAERS Safety Report 5800058-9 (Version None)
Quarter: 2008Q3

REPORT INFORMATION
  Report Type: 
  Country: None (occurrence: None)
  Receive Date: 20080703
  Receipt Date: 20080624
  Transmission Date: 20090109
  Serious: Yes (Other)
  Sender: FDA-Public Use
  Company Number: GB-AMGEN-UK290066

PATIENT
  Sex: Female
  Weight: 57 kg

DRUGS (4)
  1. KINERET [Suspect]
     Indication: RHEUMATOID ARTHRITIS
     Route: 065
     Dates: start: 20041013, end: 20041221
  2. AZATHIOPRINE [Concomitant]
  3. CODEINE SUL TAB [Concomitant]
  4. ACETAMINOPHEN [Concomitant]

REACTIONS (1)
  - SKIN CANCER [None]
